FAERS Safety Report 6291118-X (Version None)
Quarter: 2009Q3

REPORT INFORMATION
  Report Type: 
  Country: None (occurrence: None)
  Receive Date: 20090730
  Receipt Date: 20090722
  Transmission Date: 20100115
  Serious: Yes (Death, Hospitalization)
  Sender: FDA-Public Use
  Company Number: A0799198A

PATIENT
  Sex: Male

DRUGS (1)
  1. SERETIDE [Suspect]
     Indication: ASTHMA
     Route: 065
     Dates: start: 19980101, end: 20081217

REACTIONS (1)
  - RESPIRATORY ARREST [None]
